FAERS Safety Report 4273736-3 (Version None)
Quarter: 2004Q1

REPORT INFORMATION
  Report Type: 
  Country: None (occurrence: None)
  Receive Date: 20040119
  Receipt Date: 20040112
  Transmission Date: 20041129
  Serious: Yes (Hospitalization)
  Sender: FDA-Public Use
  Company Number: PHBS2004CH00714

PATIENT
  Age: 17 Year
  Sex: Female

DRUGS (2)
  1. LEPONEX [Suspect]
     Route: 065
  2. FLUCTINE [Suspect]
     Route: 065

REACTIONS (1)
  - TOXIC DILATATION OF COLON [None]
